FAERS Safety Report 24184860 (Version 1)
Quarter: 2024Q3

REPORT INFORMATION
  Report Type: Spontaneous
  Country: US (occurrence: None)
  Receive Date: 20240807
  Receipt Date: 20240807
  Transmission Date: 20241016
  Serious: No
  Sender: Public
  Company Number: None

PATIENT
  Age: 66 Year
  Sex: Female
  Weight: 52.16 kg

DRUGS (1)
  1. ENBREL [Suspect]
     Active Substance: BENZYL ALCOHOL\ETANERCEPT
     Indication: Psoriasis
     Dosage: OTHER FREQUENCY : TWICEAWKFOR3MONTHS;?
     Route: 058
     Dates: start: 202310

REACTIONS (2)
  - Osteomyelitis [None]
  - Therapy interrupted [None]
